FAERS Safety Report 24548611 (Version 1)
Quarter: 2024Q4

REPORT INFORMATION
  Report Type: Spontaneous
  Country: US (occurrence: US)
  Receive Date: 20241025
  Receipt Date: 20241025
  Transmission Date: 20250114
  Serious: Yes (Life-Threatening, Other)
  Sender: HIKMA
  Company Number: US-MLMSERVICE-20231122-4681262-1

PATIENT
  Age: 71 Year
  Sex: Male

DRUGS (11)
  1. GENTAMICIN [Suspect]
     Active Substance: GENTAMICIN
     Indication: Arthritis infective
     Dosage: 240 MILLIGRAM
     Route: 014
  2. GENTAMICIN [Suspect]
     Active Substance: GENTAMICIN
     Indication: Device related infection
     Dosage: NEW SPACER CONTAINED TWO 40-GRAM CEMENT BATCHES, EACH CONTAINING 3 GRAMS OF VANCOMYCIN AND 3.6 GRAMS
     Route: 014
  3. GENTAMICIN [Suspect]
     Active Substance: GENTAMICIN
     Indication: Staphylococcal infection
  4. TOBRAMYCIN [Suspect]
     Active Substance: TOBRAMYCIN\TOBRAMYCIN SULFATE
     Indication: Staphylococcal infection
     Dosage: NEW SPACER CONTAINED TWO 40-GRAM CEMENT BATCHES, EACH CONTAINING 3 GRAMS OF VANCOMYCIN AND 3.6 GRAMS
     Route: 014
  5. TOBRAMYCIN [Suspect]
     Active Substance: TOBRAMYCIN\TOBRAMYCIN SULFATE
     Indication: Arthritis infective
     Dosage: 3.6 GRAM
     Route: 013
  6. TOBRAMYCIN [Suspect]
     Active Substance: TOBRAMYCIN\TOBRAMYCIN SULFATE
     Indication: Device related infection
  7. VANCOMYCIN [Suspect]
     Active Substance: VANCOMYCIN
     Indication: Arthritis infective
     Dosage: 1 GRAM
     Route: 014
  8. VANCOMYCIN [Suspect]
     Active Substance: VANCOMYCIN
     Indication: Device related infection
     Dosage: 125 MILLIGRAM, Q12H
     Route: 048
  9. VANCOMYCIN [Suspect]
     Active Substance: VANCOMYCIN
     Indication: Staphylococcal infection
     Dosage: 3 GRAM
     Route: 014
  10. CEFAZOLIN [Concomitant]
     Active Substance: CEFAZOLIN
     Indication: Arthritis infective
     Dosage: 2 GRAM, Q12H
     Route: 042
  11. CEFAZOLIN [Concomitant]
     Active Substance: CEFAZOLIN
     Indication: Device related infection

REACTIONS (1)
  - Acute kidney injury [Recovered/Resolved]
